FAERS Safety Report 5377947-5 (Version None)
Quarter: 2007Q2

REPORT INFORMATION
  Report Type: 
  Country: None (occurrence: None)
  Receive Date: 20070629
  Receipt Date: 20070615
  Transmission Date: 20071010
  Serious: Yes (Death)
  Sender: FDA-Public Use
  Company Number: CLOF-10474

PATIENT
  Age: 75 Year
  Sex: Female
  Weight: 65.8 kg

DRUGS (2)
  1. CLOFARABINE (BLINDED) [Suspect]
     Indication: ACUTE MYELOID LEUKAEMIA
     Dosage: 64 MG QD X 5 IV
     Route: 042
     Dates: start: 20061221, end: 20061225
  2. CYTARABINE [Suspect]
     Indication: ACUTE MYELOID LEUKAEMIA
     Dosage: 1600 MG QD X 5
     Dates: start: 20061221, end: 20061225

REACTIONS (11)
  - BONE MARROW FAILURE [None]
  - EMBOLISM [None]
  - ENTEROCOCCAL INFECTION [None]
  - FALL [None]
  - FAT NECROSIS [None]
  - FEBRILE NEUTROPENIA [None]
  - NORMOCHROMIC NORMOCYTIC ANAEMIA [None]
  - PANCYTOPENIA [None]
  - PSEUDOMONAL SEPSIS [None]
  - SKIN LESION [None]
  - SUBARACHNOID HAEMORRHAGE [None]
